FAERS Safety Report 5974740-7 (Version None)
Quarter: 2008Q4

REPORT INFORMATION
  Report Type: 
  Country: None (occurrence: None)
  Receive Date: 20081201
  Receipt Date: 20080206
  Transmission Date: 20090506
  Serious: No
  Sender: FDA-Public Use
  Company Number: US-AMGEN-KDL261735

PATIENT
  Sex: Female
  Weight: 123.5 kg

DRUGS (6)
  1. ENBREL [Suspect]
     Indication: RHEUMATOID ARTHRITIS
     Route: 058
     Dates: start: 20070921
  2. METHOTREXATE [Concomitant]
     Route: 048
     Dates: start: 20070810
  3. ARTHROTEC [Concomitant]
     Dates: start: 20070904
  4. FOLIC ACID [Concomitant]
     Dates: start: 20070810
  5. ULTRACET [Concomitant]
  6. SKELAXIN [Concomitant]
     Dates: start: 20070810

REACTIONS (6)
  - ENTEROCOLITIS INFECTIOUS [None]
  - HERPES ZOSTER [None]
  - MUSCULOSKELETAL PAIN [None]
  - NECK PAIN [None]
  - RHEUMATOID ARTHRITIS [None]
  - STRESS [None]
